FAERS Safety Report 24309853 (Version 10)
Quarter: 2025Q2

REPORT INFORMATION
  Report Type: Spontaneous
  Country: JP (occurrence: JP)
  Receive Date: 20240912
  Receipt Date: 20250401
  Transmission Date: 20250716
  Serious: Yes (Other)
  Sender: ARGENX BVBA
  Company Number: JP-ARGENX-2024-ARGX-JP007222AA

PATIENT

DRUGS (24)
  1. VYVGART [Suspect]
     Active Substance: EFGARTIGIMOD ALFA-FCAB
     Indication: Myasthenia gravis
     Route: 042
     Dates: start: 20230701
  2. VYVGART [Suspect]
     Active Substance: EFGARTIGIMOD ALFA-FCAB
     Route: 042
  3. VYVGART [Suspect]
     Active Substance: EFGARTIGIMOD ALFA-FCAB
     Route: 042
  4. VYVGART [Suspect]
     Active Substance: EFGARTIGIMOD ALFA-FCAB
     Route: 042
  5. VYVGART [Suspect]
     Active Substance: EFGARTIGIMOD ALFA-FCAB
     Route: 042
     Dates: start: 20241009, end: 20241030
  6. CLARITHROMYCIN [Suspect]
     Active Substance: CLARITHROMYCIN
     Indication: Toothache
     Route: 065
     Dates: start: 20241023, end: 20241025
  7. CLARITHROMYCIN [Suspect]
     Active Substance: CLARITHROMYCIN
     Indication: Tooth disorder
  8. PREDONINE [Suspect]
     Active Substance: PREDNISOLONE
     Indication: Product used for unknown indication
     Route: 065
  9. TACROLIMUS [Concomitant]
     Active Substance: TACROLIMUS
     Indication: Product used for unknown indication
     Route: 048
  10. TACROLIMUS [Concomitant]
     Active Substance: TACROLIMUS
     Route: 048
  11. EDOXABAN TOSYLATE [Concomitant]
     Active Substance: EDOXABAN TOSYLATE
     Indication: Atrial fibrillation
     Route: 048
  12. AMLODIPINE [Concomitant]
     Active Substance: AMLODIPINE BESYLATE
     Indication: Product used for unknown indication
     Route: 065
  13. ALENDRONATE [Concomitant]
     Active Substance: ALENDRONATE SODIUM
     Indication: Product used for unknown indication
     Dosage: 35 MG, 1/WEEK
     Route: 048
  14. BISOPROLOL FUMARATE [Concomitant]
     Active Substance: BISOPROLOL FUMARATE
     Indication: Atrial fibrillation
     Route: 048
  15. PILSICAINIDE HYDROCHLORIDE [Concomitant]
     Active Substance: PILSICAINIDE HYDROCHLORIDE
     Indication: Atrial fibrillation
     Route: 048
  16. Minnebro OD [Concomitant]
     Indication: Product used for unknown indication
     Route: 048
  17. ESZOPICLONE [Concomitant]
     Active Substance: ESZOPICLONE
     Indication: Product used for unknown indication
     Route: 048
  18. BELSOMRA [Concomitant]
     Active Substance: SUVOREXANT
     Indication: Circadian rhythm sleep disorder
     Route: 048
  19. TRAMADOL [Concomitant]
     Active Substance: TRAMADOL
     Indication: Product used for unknown indication
     Route: 065
  20. CALONAL [Concomitant]
     Active Substance: ACETAMINOPHEN
     Indication: Product used for unknown indication
     Route: 065
  21. LUNESTA [Concomitant]
     Active Substance: ESZOPICLONE
     Indication: Circadian rhythm sleep disorder
     Route: 048
  22. UREA [Concomitant]
     Active Substance: UREA
     Indication: Product used for unknown indication
     Route: 003
  23. GLYCOSAMINOGLYCANS [Concomitant]
     Active Substance: GLYCOSAMINOGLYCANS
     Indication: Product used for unknown indication
     Route: 003
  24. GLYCOSAMINOGLYCANS [Concomitant]
     Active Substance: GLYCOSAMINOGLYCANS
     Indication: Product used for unknown indication
     Route: 003

REACTIONS (30)
  - Atrial fibrillation [Unknown]
  - Pyrexia [Recovered/Resolved]
  - Musculoskeletal discomfort [Recovered/Resolved]
  - Hyperhidrosis [Recovered/Resolved]
  - Micturition frequency decreased [Unknown]
  - Spinal osteoarthritis [Unknown]
  - Malaise [Recovered/Resolved]
  - Visual impairment [Unknown]
  - Dyspnoea [Unknown]
  - Malaise [Recovered/Resolved]
  - Dysphonia [Unknown]
  - Malaise [Not Recovered/Not Resolved]
  - Toothache [Recovered/Resolved]
  - Weight decreased [Unknown]
  - Malaise [Unknown]
  - Physical deconditioning [Unknown]
  - Gait disturbance [Unknown]
  - Back pain [Unknown]
  - Neck pain [Unknown]
  - Pain in extremity [Unknown]
  - Muscular weakness [Unknown]
  - Physical disability [Unknown]
  - Myasthenia gravis [Unknown]
  - Malaise [Unknown]
  - Sleep disorder [Unknown]
  - Irregular sleep wake rhythm disorder [Unknown]
  - Tooth abscess [Unknown]
  - Procedural headache [Recovered/Resolved]
  - Procedural headache [Unknown]
  - Drug ineffective [Unknown]

NARRATIVE: CASE EVENT DATE: 20231001
